FAERS Safety Report 10653851 (Version 1)
Quarter: 2014Q4

REPORT INFORMATION
  Report Type: Spontaneous
  Country: US (occurrence: None)
  Receive Date: 20141212
  Receipt Date: 20141212
  Transmission Date: 20150529
  Serious: Yes (Hospitalization, Other)
  Sender: FDA-Public Use
  Company Number: None

PATIENT
  Age: 6 Year
  Sex: Male
  Weight: 21.77 kg

DRUGS (2)
  1. ABILIFY [Suspect]
     Active Substance: ARIPIPRAZOLE
     Indication: AGGRESSION
     Dosage: 0.5 ML?2X PER DAY?LIQUID FORM
  2. ABILIFY [Suspect]
     Active Substance: ARIPIPRAZOLE
     Indication: HEAD BANGING
     Dosage: 0.5 ML?2X PER DAY?LIQUID FORM

REACTIONS (9)
  - Condition aggravated [None]
  - Brain injury [None]
  - Aphasia [None]
  - Anger [None]
  - Frustration [None]
  - Lethargy [None]
  - Head banging [None]
  - Seizure [None]
  - Aggression [None]

NARRATIVE: CASE EVENT DATE: 20140429
